FAERS Safety Report 20420900 (Version 1)
Quarter: 2022Q1

REPORT INFORMATION
  Report Type: Spontaneous
  Country: CN (occurrence: CN)
  Receive Date: 20220203
  Receipt Date: 20220203
  Transmission Date: 20220423
  Serious: Yes (Hospitalization, Other)
  Sender: FDA-Public Use
  Company Number: CN-ALVOGEN-2022-ALVOGEN-118249

PATIENT
  Age: 50 Year
  Sex: Female

DRUGS (1)
  1. DEXAMETHASONE [Suspect]
     Active Substance: DEXAMETHASONE
     Indication: Product used for unknown indication
     Dosage: AT LEAST 2 MG DAILY
     Dates: start: 2015, end: 2018

REACTIONS (4)
  - Renal tuberculosis [Unknown]
  - Intentional product misuse [Unknown]
  - Hyperadrenocorticism [Unknown]
  - Condition aggravated [Unknown]
